FAERS Safety Report 6992765-X (Version None)
Quarter: 2010Q3

REPORT INFORMATION
  Report Type: 
  Country: None (occurrence: None)
  Receive Date: 20100917
  Receipt Date: 20100908
  Transmission Date: 20110219
  Serious: Yes (Hospitalization)
  Sender: FDA-Public Use
  Company Number: A0849763A

PATIENT
  Age: 49 Year
  Sex: Male

DRUGS (10)
  1. AVANDIA [Suspect]
     Indication: DIABETES MELLITUS
     Dosage: 4MG TWICE PER DAY
     Route: 048
     Dates: start: 20060101, end: 20070727
  2. AVANDAMET [Suspect]
     Indication: DIABETES MELLITUS
     Route: 048
     Dates: start: 20050901, end: 20051201
  3. NAPROXEN [Concomitant]
  4. GABAPENTIN [Concomitant]
  5. METFORMIN [Concomitant]
  6. GEMFIBROZIL [Concomitant]
  7. PROZAC [Concomitant]
  8. TRAMADOL [Concomitant]
  9. LORATADINE [Concomitant]
  10. LANTUS [Concomitant]

REACTIONS (3)
  - CARDIAC FAILURE CONGESTIVE [None]
  - CEREBROVASCULAR ACCIDENT [None]
  - MYOCARDIAL INFARCTION [None]
